FAERS Safety Report 5642019-9 (Version None)
Quarter: 2008Q1

REPORT INFORMATION
  Report Type: 
  Country: None (occurrence: None)
  Receive Date: 20080227
  Receipt Date: 20080215
  Transmission Date: 20080703
  Serious: Yes (Death)
  Sender: FDA-Public Use
  Company Number: JP-PFIZER INC-2008014937

PATIENT
  Age: 56 Year
  Sex: Female

DRUGS (4)
  1. SOLU-MEDROL [Suspect]
     Route: 042
  2. TACROLIMUS [Concomitant]
  3. MYCOPHENOLATE MOFETIL [Concomitant]
  4. BASILIXIMAB [Concomitant]

REACTIONS (2)
  - LYMPHOPROLIFERATIVE DISORDER [None]
  - PNEUMONIA [None]
